FAERS Safety Report 7277705-0 (Version None)
Quarter: 2011Q1

REPORT INFORMATION
  Report Type: 
  Country: None (occurrence: None)
  Receive Date: 20110207
  Receipt Date: 20110131
  Transmission Date: 20110831
  Serious: No
  Sender: FDA-Public Use
  Company Number: US-PFIZER INC-2011022340

PATIENT
  Sex: Female
  Weight: 97.506 kg

DRUGS (3)
  1. PRISTIQ [Suspect]
     Indication: FIBROMYALGIA
     Dosage: UNKNOWN
  2. ESTROGENS [Concomitant]
     Dosage: UNK
  3. PRISTIQ [Suspect]
     Indication: DEPRESSION
     Dosage: 50 MG, 1X/DAY
     Route: 048
     Dates: start: 20080101

REACTIONS (4)
  - WITHDRAWAL SYNDROME [None]
  - INSOMNIA [None]
  - NIGHTMARE [None]
  - DRUG INEFFECTIVE [None]
